FAERS Safety Report 13854982 (Version 1)
Quarter: 2017Q3

REPORT INFORMATION
  Report Type: Spontaneous
  Country: US (occurrence: US)
  Receive Date: 20170810
  Receipt Date: 20170810
  Transmission Date: 20171127
  Serious: No
  Sender: FDA-Public Use
  Company Number: US-BRAINTREE LABORATORIES-170259

PATIENT
  Age: 59 Year
  Sex: Female
  Weight: 104.77 kg

DRUGS (1)
  1. GOLYTELY [Suspect]
     Active Substance: POLYETHYLENE GLYCOL 3350\POTASSIUM CHLORIDE\SODIUM BICARBONATE\SODIUM CHLORIDE\SODIUM SULFATE ANHYDROUS
     Indication: COLONOSCOPY
     Dosage: 4L
     Route: 048
     Dates: start: 20170422, end: 20170422

REACTIONS (4)
  - Abdominal pain upper [None]
  - Chest discomfort [None]
  - Abdominal distension [None]
  - Eructation [None]

NARRATIVE: CASE EVENT DATE: 20170422
